FAERS Safety Report 18421957 (Version 1)
Quarter: 2020Q4

REPORT INFORMATION
  Report Type: Spontaneous
  Country: US (occurrence: US)
  Receive Date: 20201023
  Receipt Date: 20201023
  Transmission Date: 20210114
  Serious: No
  Sender: FDA-Public Use
  Company Number: US-PFIZER INC-2020408872

PATIENT
  Age: 85 Year
  Sex: Male
  Weight: 82.55 kg

DRUGS (2)
  1. VYNDAMAX [Suspect]
     Active Substance: TAFAMIDIS
     Indication: AMYLOIDOSIS
     Dosage: 61 MG, 1X/DAY
     Dates: start: 20200902
  2. VYNDAMAX [Suspect]
     Active Substance: TAFAMIDIS
     Indication: ALPHA-THALASSAEMIA-INTELLECTUAL DEFICIT SYNDROME

REACTIONS (1)
  - Memory impairment [Not Recovered/Not Resolved]
